FAERS Safety Report 5900884-1 (Version None)
Quarter: 2008Q3

REPORT INFORMATION
  Report Type: 
  Country: None (occurrence: None)
  Receive Date: 20080924
  Receipt Date: 20080918
  Transmission Date: 20090109
  Serious: Yes (Other)
  Sender: FDA-Public Use
  Company Number: 2008JP004340

PATIENT
  Age: 86 Year
  Sex: Female

DRUGS (2)
  1. PROGRAF [Suspect]
     Indication: RHEUMATOID ARTHRITIS
     Dosage: 3 MG, D, ORAL
     Route: 048
     Dates: start: 20071001, end: 20080912
  2. PROGRAF [Suspect]
     Indication: RHEUMATOID ARTHRITIS
     Dosage: 3 MG, D, ORAL
     Route: 048
     Dates: start: 20080916, end: 20080916

REACTIONS (1)
  - LUNG INFECTION [None]
